FAERS Safety Report 23570171 (Version 2)
Quarter: 2024Q1

REPORT INFORMATION
  Report Type: Spontaneous
  Country: US (occurrence: US)
  Receive Date: 20240227
  Receipt Date: 20240325
  Transmission Date: 20240409
  Serious: No
  Sender: FDA-Public Use
  Company Number: US-BRISTOL-MYERS SQUIBB COMPANY-2024-030900

PATIENT
  Age: 77 Year
  Sex: Male

DRUGS (1)
  1. REVLIMID [Suspect]
     Active Substance: LENALIDOMIDE
     Indication: Chemotherapy
     Route: 048

REACTIONS (4)
  - Insurance issue [Unknown]
  - Therapy interrupted [Unknown]
  - Asthenia [Unknown]
  - Circumstance or information capable of leading to medication error [Unknown]
